FAERS Safety Report 11299155 (Version 1)
Quarter: 2015Q3

REPORT INFORMATION
  Report Type: Spontaneous
  Country: US (occurrence: US)
  Receive Date: 20150722
  Receipt Date: 20150722
  Transmission Date: 20151125
  Serious: No
  Sender: FDA-Public Use
  Company Number: US-ELI_LILLY_AND_COMPANY-US201207007499

PATIENT
  Sex: Female

DRUGS (3)
  1. HUMATROPE [Suspect]
     Active Substance: SOMATROPIN
     Dosage: 0.6 MG, QD
     Dates: start: 201202, end: 201206
  2. HUMATROPE [Suspect]
     Active Substance: SOMATROPIN
     Dosage: 0.6 MG, QD
     Dates: start: 201207
  3. HUMATROPE [Suspect]
     Active Substance: SOMATROPIN
     Dosage: UNK
     Dates: start: 201206, end: 201207

REACTIONS (2)
  - Wrong device dispensed [Recovered/Resolved]
  - Incorrect dose administered [Recovered/Resolved]

NARRATIVE: CASE EVENT DATE: 201206
